FAERS Safety Report 9626415 (Version 2)
Quarter: 2013Q4

REPORT INFORMATION
  Report Type: Report from Study
  Country: JP (occurrence: JP)
  Receive Date: 20131016
  Receipt Date: 20131016
  Transmission Date: 20140711
  Serious: Yes (Hospitalization)
  Sender: FDA-Public Use
  Company Number: JP-TAKEDA-TCI2013A00114

PATIENT
  Age: 82 Year
  Sex: Female
  Weight: 46 kg

DRUGS (12)
  1. TAK-438 [Suspect]
     Indication: PROPHYLAXIS AGAINST GASTROINTESTINAL ULCER
     Route: 048
     Dates: start: 20120713
  2. TAK-438 [Suspect]
     Indication: PROPHYLAXIS AGAINST GASTROINTESTINAL ULCER
     Route: 048
     Dates: start: 20120119, end: 20120712
  3. LOXONIN [Concomitant]
     Indication: OSTEOARTHRITIS
     Route: 048
     Dates: start: 20101004
  4. LOXONIN [Concomitant]
     Indication: NEUROGENIC BLADDER
  5. OLMETEC [Concomitant]
     Indication: HYPERTENSION
     Route: 048
     Dates: start: 20090326
  6. CILNIDIPINE [Concomitant]
     Indication: HYPERTENSION
     Route: 048
     Dates: start: 20100205
  7. TSUMURA BAKUMONDOTO [Concomitant]
     Indication: GASTRITIS
     Route: 048
     Dates: start: 20111221
  8. TSUMURA BAKUMONDOTO [Concomitant]
     Indication: GASTRITIS
  9. IPD [Concomitant]
     Indication: NEUROGENIC BLADDER
     Route: 048
     Dates: start: 20080612
  10. ALOSENN [Concomitant]
     Indication: CONSTIPATION
     Route: 048
     Dates: start: 20120509
  11. TAKEPRON CAPSULES 30 [Suspect]
     Indication: PROPHYLAXIS AGAINST GASTROINTESTINAL ULCER
     Dosage: 15 MG, QD
     Route: 048
     Dates: start: 20120713
  12. TAKEPRON CAPSULES 30 [Suspect]
     Dosage: 15 MG, QD
     Route: 048
     Dates: start: 20120119, end: 20120712

REACTIONS (1)
  - Occult blood positive [Recovered/Resolved]
